FAERS Safety Report 19204611 (Version 2)
Quarter: 2021Q2

REPORT INFORMATION
  Report Type: Report from Study
  Country: MX (occurrence: MX)
  Receive Date: 20210503
  Receipt Date: 20210519
  Transmission Date: 20210717
  Serious: Yes (Other)
  Sender: FDA-Public Use
  Company Number: NVSC2021MX095402

PATIENT
  Sex: Male
  Weight: 90 kg

DRUGS (3)
  1. GALVUS MET [Suspect]
     Active Substance: METFORMIN HYDROCHLORIDE\VILDAGLIPTIN
     Indication: BLOOD GLUCOSE INCREASED
     Dosage: 2 DF, QD
     Route: 048
     Dates: start: 2010
  2. HUMALOG MIX [Concomitant]
     Active Substance: INSULIN LISPRO
     Indication: BLOOD GLUCOSE
     Dosage: 40 IU, QD (20 IU IN MORNING AND 20 IU AT NIGHT), 20 (25 NO UNIT PROVIDED) (STARTED 4 YEARS AGO)
     Route: 058
     Dates: start: 2005
  3. ENALADIL [Concomitant]
     Indication: BLOOD PRESSURE MEASUREMENT
     Dosage: 1 DF, QD (STARTED 10 YEARS AGO)
     Route: 048

REACTIONS (2)
  - Deafness [Not Recovered/Not Resolved]
  - Blood glucose increased [Not Recovered/Not Resolved]
